FAERS Safety Report 17458633 (Version 2)
Quarter: 2020Q1

REPORT INFORMATION
  Report Type: Spontaneous
  Country: FR (occurrence: FR)
  Receive Date: 20200225
  Receipt Date: 20200327
  Transmission Date: 20200409
  Serious: Yes (Hospitalization, Other)
  Sender: FDA-Public Use
  Company Number: FR-CANTON LABORATORIES, LLC-2080902

PATIENT
  Age: 51 Year
  Sex: Female

DRUGS (3)
  1. METHROTREXATE [Suspect]
     Active Substance: METHOTREXATE
     Route: 065
  2. RITUXIMAB. [Suspect]
     Active Substance: RITUXIMAB
     Route: 042
  3. NAPROSYN [Suspect]
     Active Substance: NAPROXEN
     Indication: MUSCULOSKELETAL PAIN
     Route: 065

REACTIONS (1)
  - Hepatitis E [Recovered/Resolved]
